FAERS Safety Report 9723663 (Version 2)
Quarter: 2014Q1

REPORT INFORMATION
  Report Type: Spontaneous
  Country: US (occurrence: US)
  Receive Date: 20131202
  Receipt Date: 20140129
  Transmission Date: 20141002
  Serious: Yes (Other)
  Sender: FDA-Public Use
  Company Number: US-PFIZER INC-2013339772

PATIENT
  Age: 64 Year
  Sex: Female
  Weight: 61.68 kg

DRUGS (5)
  1. LYRICA [Suspect]
     Indication: FIBROMYALGIA
     Dosage: 75 MG, 3X/DAY
     Route: 048
  2. TRAZODONE [Concomitant]
     Indication: SLEEP DISORDER
     Dosage: 50 MG, 1X/DAY
  3. TRAZODONE [Concomitant]
     Indication: FEELING OF RELAXATION
  4. ATORVASTATIN [Concomitant]
     Indication: BLOOD CHOLESTEROL INCREASED
     Dosage: UNK
  5. LISINOPRIL [Concomitant]
     Indication: HYPERTENSION
     Dosage: 20 MG, 1X/DAY

REACTIONS (2)
  - Pneumonia [Recovered/Resolved]
  - Cough [Not Recovered/Not Resolved]
